FAERS Safety Report 4619744-1 (Version None)
Quarter: 2005Q1

REPORT INFORMATION
  Report Type: 
  Country: None (occurrence: None)
  Receive Date: 20050325
  Receipt Date: 20050323
  Transmission Date: 20050727
  Serious: Yes (Disabling)
  Sender: FDA-Public Use
  Company Number: US-MERCK-0503USA04066

PATIENT
  Age: 65 Year
  Sex: Female

DRUGS (3)
  1. FOSAMAX [Suspect]
     Indication: OSTEOPOROSIS
     Route: 048
     Dates: start: 20050101
  2. PREVACID [Concomitant]
     Route: 065
  3. BETAPACE [Concomitant]
     Route: 065

REACTIONS (6)
  - BONE PAIN [None]
  - DRY SKIN [None]
  - FATIGUE [None]
  - INFLUENZA LIKE ILLNESS [None]
  - NODULE [None]
  - SKIN DISCOLOURATION [None]
